FAERS Safety Report 7214609-3 (Version None)
Quarter: 2011Q1

REPORT INFORMATION
  Report Type: 
  Country: None (occurrence: None)
  Receive Date: 20110107
  Receipt Date: 20110104
  Transmission Date: 20110831
  Serious: No
  Sender: FDA-Public Use
  Company Number: KR-JNJFOC-20110100975

PATIENT
  Sex: Female

DRUGS (1)
  1. DURAGESIC-100 [Suspect]
     Indication: PAIN MANAGEMENT
     Dosage: HALF A PATCH
     Route: 062

REACTIONS (3)
  - DRUG PRESCRIBING ERROR [None]
  - FACE OEDEMA [None]
  - DRUG ADMINISTRATION ERROR [None]
